FAERS Safety Report 9435703 (Version 2)
Quarter: 2013Q3

REPORT INFORMATION
  Report Type: Report from Study
  Country: BR (occurrence: BR)
  Receive Date: 20130801
  Receipt Date: 20130826
  Transmission Date: 20140515
  Serious: Yes (Hospitalization, Disabling, Other)
  Sender: FDA-Public Use
  Company Number: BR-ABBOTT-13P-020-1125710-00

PATIENT
  Age: 50 Year
  Sex: Female
  Weight: 74 kg

DRUGS (19)
  1. HUMIRA [Suspect]
     Indication: ANKYLOSING SPONDYLITIS
     Route: 058
     Dates: start: 20120924
  2. HUMIRA [Suspect]
     Indication: COLITIS
     Route: 058
     Dates: start: 201307
  3. ENALAPRIL [Concomitant]
     Indication: HYPERTENSION
     Route: 048
     Dates: start: 2006
  4. FLUOXETIN [Concomitant]
     Indication: MIGRAINE
     Route: 048
     Dates: start: 2001, end: 20130623
  5. DORZOLAMIDE [Concomitant]
     Indication: GLAUCOMA
     Dosage: FORM OF ADMINISTRATION: DROPS
     Route: 050
     Dates: start: 2011, end: 201210
  6. ATENOLOL [Concomitant]
     Indication: HYPERTENSION
     Route: 048
     Dates: start: 2011
  7. ACETAMINOPHEN / CODEINE PHOSPHATE (TYLEX) [Concomitant]
     Indication: PAIN
     Route: 048
     Dates: start: 201304
  8. ACETAMINOPHEN / CODEINE PHOSPHATE (TYLEX) [Concomitant]
     Indication: ANKYLOSING SPONDYLITIS
  9. CLONIXINATE LYSINE (DOLAMIN) [Concomitant]
     Indication: PAIN
     Route: 048
     Dates: start: 201304, end: 20130623
  10. CLONIXINATE LYSINE (DOLAMIN) [Concomitant]
     Indication: ANKYLOSING SPONDYLITIS
  11. RIVOTRIL [Concomitant]
     Indication: PANIC DISORDER
     Route: 048
     Dates: start: 20130623
  12. FORFIG [Concomitant]
  13. LANSOPRAZOLE [Concomitant]
     Indication: GASTRITIS
     Dates: start: 201305
  14. LANSOPRAZOLE [Concomitant]
     Indication: DUODENITIS
  15. LANSOPRAZOLE [Concomitant]
     Indication: GASTROOESOPHAGEAL REFLUX DISEASE
  16. SIMECO PLUS [Concomitant]
     Indication: GASTROOESOPHAGEAL REFLUX DISEASE
     Dates: end: 201305
  17. SIMECO PLUS [Concomitant]
     Indication: GASTRITIS
  18. SIMECO PLUS [Concomitant]
     Indication: DUODENITIS
  19. UNKNOWN DRUG [Concomitant]
     Indication: HYPERTENSION

REACTIONS (1)
  - Liver disorder [Recovering/Resolving]
